FAERS Safety Report 23661461 (Version 3)
Quarter: 2024Q2

REPORT INFORMATION
  Report Type: Report from Study
  Country: US (occurrence: US)
  Receive Date: 20240322
  Receipt Date: 20240516
  Transmission Date: 20240716
  Serious: No
  Sender: FDA-Public Use
  Company Number: US-ACADIA PHARMACEUTICALS INC.-ACA-2024-PIM-001260

PATIENT
  Sex: Male

DRUGS (20)
  1. NUPLAZID [Suspect]
     Active Substance: PIMAVANSERIN TARTRATE
     Indication: Parkinson^s disease psychosis
     Dosage: 34 MILLIGRAM, QD
     Route: 048
     Dates: start: 202403
  2. LIPITOR [Concomitant]
     Active Substance: ATORVASTATIN CALCIUM
     Dosage: 40 MILLIGRAM, QD
     Route: 048
  3. RYTARY [Concomitant]
     Active Substance: CARBIDOPA\LEVODOPA
     Dosage: 2 CAPSULES FOUR TIMES DAILY
     Route: 048
  4. KLONOPIN [Concomitant]
     Active Substance: CLONAZEPAM
     Dosage: 0.5 MG 4 TIMES DAILY AS NEEDED
     Route: 048
  5. JARDIANCE [Concomitant]
     Active Substance: EMPAGLIFLOZIN
     Dosage: 25 MG
     Route: 048
  6. LEXAPRO [Concomitant]
     Active Substance: ESCITALOPRAM OXALATE
     Dosage: 20MG
     Route: 048
  7. FINASTERIDE [Concomitant]
     Active Substance: FINASTERIDE
     Dosage: 5 CAPSULES
     Route: 048
  8. LINZESS [Concomitant]
     Active Substance: LINACLOTIDE
     Dosage: 145 MCG, TAKE 1 CAPSULE BY MOUTH NIGHTLY
     Route: 048
  9. MYRBETRIQ [Concomitant]
     Active Substance: MIRABEGRON
     Dosage: 25MG 1 TABLET EVERY DAY
     Route: 048
  10. REMERON [Concomitant]
     Active Substance: MIRTAZAPINE
     Dosage: 15MG, 2 TABLETS NIGHTLY
     Route: 048
  11. MIRALAX [Concomitant]
     Active Substance: POLYETHYLENE GLYCOL 3350
     Dosage: TAKE BY MOUTH
  12. SEROQUEL [Concomitant]
     Active Substance: QUETIAPINE FUMARATE
     Indication: Agitation
     Dosage: 25MG TAB AT BEDTIME X 1 WEEK AND 2 TABS AT BEDTIME PLUS THREE TIMES A DAY AS NEEDED
  13. SEROQUEL [Concomitant]
     Active Substance: QUETIAPINE FUMARATE
     Indication: Paranoia
     Dosage: 50 MG, 1 TABLET NIGHTLY
     Route: 048
  14. EXELON [Concomitant]
     Active Substance: RIVASTIGMINE TARTRATE
     Dosage: 4.6MG/24 HR, APPLY 1 PATCH TOPICALLY EVERY 24HR
  15. TESTOSTERONE [Concomitant]
     Active Substance: TESTOSTERONE
     Dosage: INJECT 400MG INTO THE MUSCLE EVERY 21 DAYS. ONCE THREE WEEKS
  16. DESYREL [Concomitant]
     Active Substance: TRAZODONE HYDROCHLORIDE
     Dosage: 50MG, TAKE 2 TABLETS
     Route: 048
  17. EFFEXOR [Concomitant]
     Active Substance: VENLAFAXINE HYDROCHLORIDE
     Dosage: 150MG, TAKE 1 CAPSULE
     Route: 048
  18. NEURONTIN [Concomitant]
     Active Substance: GABAPENTIN
     Dosage: TAKE 1 CAPSULE BY MOUTH DAILY
     Route: 048
  19. TAMSULOSIN HYDROCHLORIDE [Concomitant]
     Active Substance: TAMSULOSIN HYDROCHLORIDE
     Dosage: TAKE 0.4MG BY MOUTH
     Route: 048
  20. SUPREP BOWEL PREP [Concomitant]
     Active Substance: MAGNESIUM SULFATE\POTASSIUM SULFATE\SODIUM SULFATE
     Dosage: 17.5-3.13-16GM/177ML

REACTIONS (1)
  - No adverse event [Unknown]
